FAERS Safety Report 7827527-4 (Version None)
Quarter: 2011Q4

REPORT INFORMATION
  Report Type: 
  Country: None (occurrence: None)
  Receive Date: 20111019
  Receipt Date: 20111019
  Transmission Date: 20120403
  Serious: Yes (Hospitalization)
  Sender: FDA-Public Use
  Company Number: None

PATIENT
  Age: 79 Year
  Sex: Male
  Weight: 109.9 kg

DRUGS (1)
  1. PROPAFENONE HCL [Suspect]
     Indication: ATRIAL FIBRILLATION
     Dosage: 1 TAB TID PO
     Route: 048
     Dates: start: 20110418, end: 20110510

REACTIONS (2)
  - AKINESIA [None]
  - HYPOAESTHESIA [None]
